FAERS Safety Report 8366188-5 (Version None)
Quarter: 2012Q2

REPORT INFORMATION
  Report Type: 
  Country: None (occurrence: None)
  Receive Date: 20120517
  Receipt Date: 20120511
  Transmission Date: 20120825
  Serious: Yes (Hospitalization)
  Sender: FDA-Public Use
  Company Number: US-BAYER-2011-005041

PATIENT
  Age: 22 Year
  Sex: Female

DRUGS (7)
  1. LORCET-HD [Concomitant]
     Dosage: UNK UNK, QID
     Dates: start: 20080717
  2. HYDROCODONE BITARTRATE AND ACETAMINOPHEN [Concomitant]
     Dosage: 7.5/650 Q 6 HOURS
     Dates: start: 20080825
  3. DROSPIRENONE AND ETHINYL ESTRADIOL [Suspect]
     Indication: CONTRACEPTION
     Dosage: UNK
     Dates: start: 20080801, end: 20081201
  4. VITAMIN TAB [Concomitant]
     Dosage: UNK
     Dates: start: 20080703
  5. XANAX [Concomitant]
     Dosage: 0.5 MG, QHR PRN
     Dates: start: 20080708
  6. PROZAC [Concomitant]
     Indication: DEPRESSION
     Dosage: UNK
     Dates: start: 20080703
  7. LORTAB [Concomitant]
     Dosage: 7.5/500
     Dates: start: 20080703

REACTIONS (5)
  - ANXIETY [None]
  - PAIN [None]
  - EMOTIONAL DISTRESS [None]
  - DEPRESSION [None]
  - CHOLELITHIASIS [None]
